FAERS Safety Report 6284399-X (Version None)
Quarter: 2009Q3

REPORT INFORMATION
  Report Type: 
  Country: None (occurrence: None)
  Receive Date: 20090727
  Receipt Date: 20090721
  Transmission Date: 20100115
  Serious: No
  Sender: FDA-Public Use
  Company Number: US-SANOFI-SYNTHELABO-A03200902875

PATIENT
  Sex: Male
  Weight: 131.5 kg

DRUGS (2)
  1. PLAVIX [Suspect]
     Indication: THROMBOSIS
     Route: 048
     Dates: start: 20000101, end: 20090601
  2. PLAVIX [Suspect]
     Dosage: CUT TABLETS IN HALF TAKING ONLY HALF A TABLET DAILY
     Route: 048
     Dates: start: 20090601

REACTIONS (2)
  - THROMBOPHLEBITIS SUPERFICIAL [None]
  - WRONG TECHNIQUE IN DRUG USAGE PROCESS [None]
